FAERS Safety Report 5204165-3 (Version None)
Quarter: 2007Q1

REPORT INFORMATION
  Report Type: 
  Country: None (occurrence: None)
  Receive Date: 20070110
  Receipt Date: 20051221
  Transmission Date: 20070707
  Serious: No
  Sender: FDA-Public Use
  Company Number: US-BRISTOL-MYERS SQUIBB COMPANY-13225586

PATIENT
  Sex: Male
  Weight: 58 kg

DRUGS (2)
  1. ABILIFY [Suspect]
     Indication: SCHIZOPHRENIA
     Dosage: INCREASED TO 15 MG FROM 10 MG DAILY ^A FEW DAYS AGO^
     Route: 048
  2. VITAMIN CAP [Concomitant]

REACTIONS (1)
  - VISUAL DISTURBANCE [None]
